FAERS Safety Report 4590044-1 (Version None)
Quarter: 2005Q1

REPORT INFORMATION
  Report Type: 
  Country: None (occurrence: None)
  Receive Date: 20050224
  Receipt Date: 20050214
  Transmission Date: 20050727
  Serious: Yes (Hospitalization, Other)
  Sender: FDA-Public Use
  Company Number: US-JNJFOC-20050104857

PATIENT
  Weight: 63.5 kg

DRUGS (2)
  1. REMICADE [Suspect]
     Route: 042
  2. 6-MP [Concomitant]

REACTIONS (3)
  - DIARRHOEA [None]
  - NEUTROPENIA [None]
  - PYREXIA [None]
